FAERS Safety Report 23409321 (Version 1)
Quarter: 2024Q1

REPORT INFORMATION
  Report Type: Spontaneous
  Country: US (occurrence: None)
  Receive Date: 20240116
  Receipt Date: 20240116
  Transmission Date: 20240410
  Serious: Yes (Disabling, Other)
  Sender: FDA-Public Use
  Company Number: None

PATIENT
  Age: 65 Year
  Sex: Female
  Weight: 74.84 kg

DRUGS (1)
  1. ABILIFY [Suspect]
     Active Substance: ARIPIPRAZOLE
     Dates: start: 20220201, end: 20221102

REACTIONS (5)
  - Tremor [None]
  - Loss of personal independence in daily activities [None]
  - Fatigue [None]
  - Drug ineffective [None]
  - Disability [None]

NARRATIVE: CASE EVENT DATE: 20221124
